FAERS Safety Report 9597112 (Version 1)
Quarter: 2013Q4

REPORT INFORMATION
  Report Type: Spontaneous
  Country: US (occurrence: US)
  Receive Date: 20131004
  Receipt Date: 20131004
  Transmission Date: 20140711
  Serious: No
  Sender: FDA-Public Use
  Company Number: US-009507513-1309USA011882

PATIENT
  Sex: Female

DRUGS (4)
  1. JANUMET XR [Suspect]
     Indication: DIABETES MELLITUS
     Dosage: 100/1000 MG ONCE DAILY
     Route: 048
     Dates: start: 201307
  2. DILTIAZEM HYDROCHLORIDE [Concomitant]
     Dosage: UNK
  3. METOPROLOL [Concomitant]
     Dosage: UNK
  4. LEVOTHYROXINE SODIUM [Concomitant]
     Dosage: UNK

REACTIONS (4)
  - Blood glucose increased [Not Recovered/Not Resolved]
  - Medication residue present [Unknown]
  - Product expiration date issue [Unknown]
  - Product lot number issue [Unknown]
